FAERS Safety Report 13745687 (Version 1)
Quarter: 2017Q3

REPORT INFORMATION
  Report Type: Report from Study
  Country: EC (occurrence: EC)
  Receive Date: 20170712
  Receipt Date: 20170712
  Transmission Date: 20171127
  Serious: Yes (Death, Other)
  Sender: FDA-Public Use
  Company Number: EC-ELI_LILLY_AND_COMPANY-EC201707003545

PATIENT
  Age: 69 Year
  Sex: Male

DRUGS (1)
  1. CETUXIMAB. [Suspect]
     Active Substance: CETUXIMAB
     Indication: HEAD AND NECK CANCER
     Dosage: 800 MG, UNKNOWN
     Route: 042
     Dates: start: 20170116

REACTIONS (3)
  - Weight decreased [Unknown]
  - Off label use [Unknown]
  - Death [Fatal]

NARRATIVE: CASE EVENT DATE: 2017
